FAERS Safety Report 18358362 (Version 3)
Quarter: 2021Q1

REPORT INFORMATION
  Report Type: Report from Study
  Country: None (occurrence: US)
  Receive Date: 20201008
  Receipt Date: 20210326
  Transmission Date: 20210419
  Serious: Yes (Hospitalization)
  Sender: FDA-Public Use
  Company Number: US-GLOBAL BLOOD THERAPEUTICS INC-US-GBT-20-03066

PATIENT
  Sex: Female

DRUGS (2)
  1. OXBRYTA [Suspect]
     Active Substance: VOXELOTOR
     Indication: SICKLE CELL DISEASE
     Dosage: NOT PROVIDED
     Dates: start: 202004, end: 202009
  2. OXBRYTA [Suspect]
     Active Substance: VOXELOTOR
     Dosage: LOWERED UNKNOWN DOSE
     Dates: start: 202009

REACTIONS (6)
  - Chest pain [Recovered/Resolved]
  - Tooth infection [Recovered/Resolved]
  - Headache [Unknown]
  - COVID-19 [Recovered/Resolved]
  - Abdominal pain upper [Unknown]
  - Diarrhoea [Recovering/Resolving]
